FAERS Safety Report 7682924-5 (Version None)
Quarter: 2011Q3

REPORT INFORMATION
  Report Type: 
  Country: None (occurrence: None)
  Receive Date: 20110815
  Receipt Date: 20110812
  Transmission Date: 20111222
  Serious: Yes (Other)
  Sender: FDA-Public Use
  Company Number: US-PFIZER INC-2011186280

PATIENT
  Sex: Female
  Weight: 64 kg

DRUGS (2)
  1. DILANTIN [Suspect]
     Indication: GRAND MAL CONVULSION
     Dosage: 100 MG, 3X/DAY
     Route: 048
     Dates: start: 19790101
  2. FOSAMAX [Concomitant]
     Dosage: UNK

REACTIONS (11)
  - RIB FRACTURE [None]
  - FOOT FRACTURE [None]
  - FRACTURED COCCYX [None]
  - ARTHRALGIA [None]
  - OSTEOPOROSIS [None]
  - UPPER LIMB FRACTURE [None]
  - PERIARTHRITIS [None]
  - FALL [None]
  - MUSCULOSKELETAL DISCOMFORT [None]
  - PAIN [None]
  - RHEUMATOID ARTHRITIS [None]
